FAERS Safety Report 6679158-X (Version None)
Quarter: 2010Q2

REPORT INFORMATION
  Report Type: 
  Country: None (occurrence: None)
  Receive Date: 20100413
  Receipt Date: 20100402
  Transmission Date: 20101027
  Serious: Yes (Other)
  Sender: FDA-Public Use
  Company Number: US-AMGEN-QUU403640

PATIENT
  Sex: Male

DRUGS (1)
  1. ENBREL [Suspect]
     Indication: ANKYLOSING SPONDYLITIS
     Route: 058
     Dates: start: 20070601

REACTIONS (6)
  - ANKYLOSING SPONDYLITIS [None]
  - ARTHRALGIA [None]
  - EYE MOVEMENT DISORDER [None]
  - HYPOAESTHESIA FACIAL [None]
  - PARAESTHESIA [None]
  - VITH NERVE PARALYSIS [None]
